FAERS Safety Report 4879900-4 (Version None)
Quarter: 2006Q1

REPORT INFORMATION
  Report Type: 
  Country: None (occurrence: None)
  Receive Date: 20060113
  Receipt Date: 20041111
  Transmission Date: 20060701
  Serious: Yes (Other)
  Sender: FDA-Public Use
  Company Number: US-MERCK-0411USA02238

PATIENT
  Age: 59 Year
  Sex: Male

DRUGS (1)
  1. VIOXX [Suspect]
     Route: 048

REACTIONS (4)
  - CARDIAC DISORDER [None]
  - CEREBROVASCULAR ACCIDENT [None]
  - INJURY [None]
  - MYOCARDIAL INFARCTION [None]
